FAERS Safety Report 19903077 (Version 4)
Quarter: 2021Q4

REPORT INFORMATION
  Report Type: Other
  Country: AU (occurrence: None)
  Receive Date: 20211001
  Receipt Date: 20211209
  Transmission Date: 20220303
  Serious: No
  Sender: FDA-Public Use
  Company Number: AU-ROCHE-2924924

PATIENT
  Sex: Female
  Weight: 100 kg

DRUGS (2)
  1. KADCYLA [Suspect]
     Active Substance: ADO-TRASTUZUMAB EMTANSINE
     Indication: Breast cancer metastatic
     Route: 065
  2. HERCEPTIN [Suspect]
     Active Substance: TRASTUZUMAB
     Indication: HER2 positive breast cancer
     Route: 042

REACTIONS (3)
  - Off label use [Unknown]
  - Disease recurrence [Unknown]
  - Disease progression [Unknown]
